FAERS Safety Report 15209278 (Version 2)
Quarter: 2018Q3

REPORT INFORMATION
  Report Type: Spontaneous
  Country: FR (occurrence: FR)
  Receive Date: 20180727
  Receipt Date: 20180814
  Transmission Date: 20181010
  Serious: Yes (Hospitalization)
  Sender: FDA-Public Use
  Company Number: FR-TEVA-2018-FR-931148

PATIENT
  Age: 55 Year
  Sex: Male
  Weight: 102.7 kg

DRUGS (2)
  1. AMOXICILLINE [Suspect]
     Active Substance: AMOXICILLIN
     Indication: ENDOCARDITIS
     Dosage: 6G/J EN 3 PERFUSIONS
     Route: 042
     Dates: start: 20180608, end: 20180611
  2. AUGMENTIN [Suspect]
     Active Substance: AMOXICILLIN\CLAVULANATE POTASSIUM
     Indication: ENDOCARDITIS
     Dosage: 6G/600MG PER DAY IN 3 INFUSIONS
     Route: 042
     Dates: start: 20180608

REACTIONS (1)
  - IIIrd nerve paralysis [Recovered/Resolved]

NARRATIVE: CASE EVENT DATE: 20180618
